FAERS Safety Report 5950795-0 (Version None)
Quarter: 2008Q4

REPORT INFORMATION
  Report Type: 
  Country: None (occurrence: None)
  Receive Date: 20081112
  Receipt Date: 20081104
  Transmission Date: 20090506
  Serious: No
  Sender: FDA-Public Use
  Company Number: US-B.I. PHARMACEUTICALS,INC./RIDGEFIELD-2008-BP-16856BP

PATIENT
  Sex: Male

DRUGS (8)
  1. SPIRIVA [Suspect]
     Indication: EMPHYSEMA
     Dosage: 18MCG
     Route: 055
     Dates: start: 20081101
  2. FORADIL [Concomitant]
     Indication: EMPHYSEMA
  3. ALBUTEROL [Concomitant]
     Indication: EMPHYSEMA
  4. TAMSULOSIN HCL [Concomitant]
     Indication: PROSTATIC DISORDER
  5. FINASTERIDE [Concomitant]
     Indication: PROSTATIC DISORDER
  6. LISINOPRIL [Concomitant]
     Indication: HYPERTENSION
  7. AMLODIPINE BESYLATE [Concomitant]
     Indication: HYPERTENSION
  8. LUBIPROSTONE [Concomitant]
     Indication: GASTRIC DISORDER

REACTIONS (2)
  - DRUG EFFECT DECREASED [None]
  - MICTURITION DISORDER [None]
